FAERS Safety Report 10088162 (Version 1)
Quarter: 2014Q2

REPORT INFORMATION
  Report Type: Spontaneous
  Country: US (occurrence: US)
  Receive Date: 20140421
  Receipt Date: 20140421
  Transmission Date: 20141212
  Serious: No
  Sender: FDA-Public Use
  Company Number: US-BIOGENIDEC-2014BI026317

PATIENT
  Sex: Female

DRUGS (6)
  1. AVONEX [Suspect]
     Indication: MULTIPLE SCLEROSIS
     Route: 030
  2. AVONEX [Suspect]
     Indication: MULTIPLE SCLEROSIS
     Route: 030
     Dates: start: 20010801
  3. AVONEX [Suspect]
     Indication: MULTIPLE SCLEROSIS
     Route: 030
     Dates: start: 20010824, end: 20110829
  4. GILENYA [Concomitant]
     Indication: MULTIPLE SCLEROSIS
  5. HYAZIDE [Concomitant]
  6. GABAPENTIN [Concomitant]

REACTIONS (2)
  - Hypertension [Unknown]
  - Drug ineffective [Unknown]
